FAERS Safety Report 7491495-8 (Version None)
Quarter: 2011Q2

REPORT INFORMATION
  Report Type: 
  Country: None (occurrence: None)
  Receive Date: 20110519
  Receipt Date: 20110513
  Transmission Date: 20111010
  Serious: Yes (Death, Other)
  Sender: FDA-Public Use
  Company Number: PHHY2011JP35517

PATIENT
  Age: 15 Year
  Sex: Female

DRUGS (4)
  1. IMMUNOGLOBULINS [Concomitant]
     Dosage: UNK
     Route: 042
  2. GANCICLOVIR [Concomitant]
     Dosage: UNK
  3. CYCLOSPORINE [Suspect]
     Indication: LYMPHOHISTIOCYTOSIS
  4. ETOPOSIDE [Concomitant]
     Indication: LYMPHOHISTIOCYTOSIS
     Dosage: UNK

REACTIONS (8)
  - SPLENIC INFARCTION [None]
  - CEREBRAL INFARCTION [None]
  - PNEUMONIA CYTOMEGALOVIRAL [None]
  - OESOPHAGEAL CANDIDIASIS [None]
  - CYTOMEGALOVIRUS HEPATITIS [None]
  - HEPATIC FAILURE [None]
  - JAUNDICE [None]
  - HEPATIC ENZYME INCREASED [None]
